FAERS Safety Report 6595488-4 (Version None)
Quarter: 2010Q1

REPORT INFORMATION
  Report Type: 
  Country: None (occurrence: None)
  Receive Date: 20100222
  Receipt Date: 20100222
  Transmission Date: 20100710
  Serious: Yes (Other)
  Sender: FDA-Public Use
  Company Number: None

PATIENT
  Age: 50 Year
  Sex: Male
  Weight: 94.3482 kg

DRUGS (2)
  1. LEVOTHYROXINE SODIUM [Suspect]
     Indication: THYROID DISORDER
     Dosage: 50 MCG 1 DAILY ORAL
     Route: 048
     Dates: start: 20100109
  2. LEVOTHYROXINE SODIUM [Suspect]
     Indication: THYROID DISORDER
     Dosage: 50 MCG 1 DAILY ORAL
     Route: 048
     Dates: start: 20100110

REACTIONS (4)
  - ABDOMINAL PAIN UPPER [None]
  - CHEST DISCOMFORT [None]
  - DYSPHONIA [None]
  - DYSPNOEA [None]
